FAERS Safety Report 16719810 (Version 1)
Quarter: 2019Q3

REPORT INFORMATION
  Report Type: Spontaneous
  Country: US (occurrence: US)
  Receive Date: 20190702
  Receipt Date: 20190702
  Transmission Date: 20191005
  Serious: No
  Sender: FDA-Public Use
  Company Number: None

PATIENT
  Age: 50 Year
  Sex: Female
  Weight: 102.06 kg

DRUGS (1)
  1. COSENTYX [Suspect]
     Active Substance: SECUKINUMAB
     Indication: ANKYLOSING SPONDYLITIS
     Dosage: INJECT 150MG (1 PEN) SUBCUTANEOUSLY ONCE A WEEK FOR 5 WEEKS  AS DIRECTED
     Route: 058
     Dates: start: 201904

REACTIONS (2)
  - Drug ineffective [None]
  - Mood swings [None]
